FAERS Safety Report 25711783 (Version 1)
Quarter: 2025Q3

REPORT INFORMATION
  Report Type: Spontaneous
  Country: US (occurrence: US)
  Receive Date: 20250821
  Receipt Date: 20250821
  Transmission Date: 20251020
  Serious: Yes (Death, Other)
  Sender: BIOMARIN
  Company Number: US-BIOMARINAP-US-2025-168089

PATIENT
  Age: 9 Month
  Sex: Female
  Weight: 5.185 kg

DRUGS (1)
  1. VOXZOGO [Suspect]
     Active Substance: VOSORITIDE
     Indication: Osteochondrodysplasia
     Dosage: 0.12 MILLIGRAM, QD
     Dates: start: 20241023

REACTIONS (4)
  - Spinal cord compression [Fatal]
  - Foramen magnum stenosis [Unknown]
  - Meningitis bacterial [Unknown]
  - Post procedural infection [Unknown]

NARRATIVE: CASE EVENT DATE: 20241101
